FAERS Safety Report 8297705 (Version 5)
Quarter: 2013Q2

REPORT INFORMATION
  Report Type: Spontaneous
  Country: US (occurrence: None)
  Receive Date: 20111122
  Receipt Date: 20120426
  Transmission Date: 20140414
  Serious: Yes (Other)
  Sender: FDA-Public Use
  Company Number: PHHY2011US43477

PATIENT
  Age: 39 Year
  Sex: Female

DRUGS (14)
  1. GILENYA [Suspect]
     Indication: MULTIPLE SCLEROSIS
     Route: 048
     Dates: start: 20110513
  2. SOLU-MEDROL (METHYLPREDNISOLONE SODIUM SUCCINATE) [Concomitant]
  3. PROVIGIL (MODAFINIL) [Concomitant]
  4. SYNTHROID (LEVOTHYROXINE SODIUM) [Concomitant]
  5. ZYRTEC (CETIRIZINE HYDROCHLORIDE) [Concomitant]
  6. ASTELIN (AZELASTINE HYDROCHLORIDE) [Concomitant]
  7. NASONEX (MOMETASONE FUROATE) [Concomitant]
  8. RELPAX (ELETRIPTAN HYDROBROMIDE) [Concomitant]
  9. EXCEDRIN (CAFFEINE, PARACETAMOL) [Concomitant]
  10. CALCIUM WITH VITAMIN D (CALCIUM PHOSPHATE, CALCIUM SODIUM LACTATE, ERGOCALCIFEROL) [Concomitant]
  11. FISH OIL (FISH OIL) [Concomitant]
  12. NEURONTIN (GABAPENTIN) [Concomitant]
  13. AVIANE (ETHINYLESTRADIOL, LEVONORGESTREL) [Concomitant]
  14. DETROL (TOLTERODINE L-TARTRATE) [Concomitant]

REACTIONS (5)
  - SOMNOLENCE [None]
  - HEART RATE DECREASED [None]
  - Fatigue [None]
  - Aspartate aminotransferase increased [None]
  - Eye pain [None]
